FAERS Safety Report 10229169 (Version 1)
Quarter: 2014Q2

REPORT INFORMATION
  Report Type: Spontaneous
  Country: US (occurrence: US)
  Receive Date: 20140611
  Receipt Date: 20140611
  Transmission Date: 20141212
  Serious: Yes (Other)
  Sender: FDA-Public Use
  Company Number: US-AMGEN-USASP2014042575

PATIENT
  Age: 36 Year
  Sex: Female

DRUGS (2)
  1. ENBREL [Suspect]
     Indication: RHEUMATOID ARTHRITIS
     Dosage: UNK
     Route: 065
     Dates: start: 201008, end: 201211
  2. METHOTREXATE [Concomitant]
     Dosage: 20 MG, QWK
     Dates: start: 201005, end: 201212

REACTIONS (3)
  - Rheumatoid arthritis [Unknown]
  - Fatigue [Unknown]
  - Arthralgia [Unknown]
